FAERS Safety Report 4781594-3 (Version None)
Quarter: 2005Q3

REPORT INFORMATION
  Report Type: 
  Country: None (occurrence: None)
  Receive Date: 20050927
  Receipt Date: 20050919
  Transmission Date: 20060218
  Serious: Yes (Other)
  Sender: FDA-Public Use
  Company Number: GBWYE845620JUL05

PATIENT
  Age: 57 Year
  Sex: Female

DRUGS (6)
  1. EFFEXOR XR [Suspect]
     Dosage: SEE IMAGE
     Dates: end: 20050201
  2. EFFEXOR XR [Suspect]
     Dosage: SEE IMAGE
     Dates: start: 20030401
  3. DIAZEPAM [Concomitant]
  4. UNSPECIFIED ANTIHYPERTENSIVE AGENT (UNSPECIFIED ANTIHYPERTENSIVE AGENT [Concomitant]
  5. MORPHINE SULFATE [Concomitant]
  6. MORPHINE SULFATE [Concomitant]

REACTIONS (8)
  - AGITATION [None]
  - ANXIETY [None]
  - CONFUSIONAL STATE [None]
  - DIARRHOEA [None]
  - LIVER FUNCTION TEST ABNORMAL [None]
  - NIGHTMARE [None]
  - PANIC ATTACK [None]
  - SPEECH DISORDER [None]
